FAERS Safety Report 16277555 (Version 1)
Quarter: 2019Q2

REPORT INFORMATION
  Report Type: Spontaneous
  Country: US (occurrence: US)
  Receive Date: 20190506
  Receipt Date: 20190506
  Transmission Date: 20190711
  Serious: Yes (Other)
  Sender: FDA-Public Use
  Company Number: US-PFIZER INC-2019187739

PATIENT
  Age: 72 Year
  Sex: Female
  Weight: 52.16 kg

DRUGS (1)
  1. CELEBREX [Suspect]
     Active Substance: CELECOXIB
     Dosage: 200 MG, 1X/DAY

REACTIONS (3)
  - Leukaemia [Unknown]
  - Pain [Unknown]
  - Arthritis [Unknown]
